FAERS Safety Report 7090727-8 (Version None)
Quarter: 2010Q4

REPORT INFORMATION
  Report Type: 
  Country: None (occurrence: None)
  Receive Date: 20101109
  Receipt Date: 20101025
  Transmission Date: 20110411
  Serious: Yes (Other)
  Sender: FDA-Public Use
  Company Number: PHHY2010IT73954

PATIENT
  Sex: Female

DRUGS (3)
  1. DEFEROXAMINE MESYLATE [Suspect]
     Indication: THALASSAEMIA
  2. RED BLOOD CELLS [Concomitant]
     Dosage: 300 ML EVERY MONTH
  3. RED BLOOD CELLS [Concomitant]
     Dosage: 300 ML EVERY WEEK

REACTIONS (3)
  - CAESAREAN SECTION [None]
  - DRUG EXPOSURE DURING PREGNANCY [None]
  - NORMAL NEWBORN [None]
